FAERS Safety Report 5588578-6 (Version None)
Quarter: 2007Q4

REPORT INFORMATION
  Report Type: 
  Country: None (occurrence: None)
  Receive Date: 20071212
  Receipt Date: 20071023
  Transmission Date: 20080405
  Serious: No
  Sender: FDA-Public Use
  Company Number: 2007RL000486

PATIENT

DRUGS (2)
  1. LOVAZA [Suspect]
     Indication: DRUG USE FOR UNKNOWN INDICATION
     Dosage: 1 GM;PO
     Route: 048
  2. ^ORAL AGENTS^ [Concomitant]

REACTIONS (2)
  - HYPOGLYCAEMIA [None]
  - THERAPEUTIC RESPONSE UNEXPECTED [None]
